FAERS Safety Report 23348858 (Version 1)
Quarter: 2023Q4

REPORT INFORMATION
  Report Type: Spontaneous
  Country: FR (occurrence: FR)
  Receive Date: 20231229
  Receipt Date: 20231229
  Transmission Date: 20240109
  Serious: Yes (Hospitalization)
  Sender: FDA-Public Use
  Company Number: None

PATIENT
  Age: 72 Year
  Sex: Female
  Weight: 43 kg

DRUGS (9)
  1. ALIMTA [Suspect]
     Active Substance: PEMETREXED DISODIUM
     Indication: Lung adenocarcinoma
     Dosage: 1?RE CURE,  500 MG, POUDRE POUR SOLUTION ? DILUER POUR PERFUSION
     Route: 042
     Dates: start: 20230623, end: 20230623
  2. ALIMTA [Suspect]
     Active Substance: PEMETREXED DISODIUM
     Dosage: 2?ME CURE,  500 MG, POUDRE POUR SOLUTION ? DILUER POUR PERFUSION
     Route: 042
     Dates: start: 20230718, end: 20230718
  3. CARBOPLATIN [Suspect]
     Active Substance: CARBOPLATIN
     Dosage: 1?RE CURE
     Route: 042
     Dates: start: 20230623, end: 20230623
  4. CARBOPLATIN [Suspect]
     Active Substance: CARBOPLATIN
     Indication: Lung adenocarcinoma
     Dosage: 2?ME CURE
     Route: 042
     Dates: start: 20230718, end: 20230718
  5. KEYTRUDA [Suspect]
     Active Substance: PEMBROLIZUMAB
     Indication: Lung adenocarcinoma
     Dosage: 1?RE CURE
     Route: 042
     Dates: start: 20230623, end: 20230623
  6. KEYTRUDA [Suspect]
     Active Substance: PEMBROLIZUMAB
     Dosage: 2?ME CURE
     Route: 042
     Dates: start: 20230718, end: 20230718
  7. FOLIC ACID [Concomitant]
     Active Substance: FOLIC ACID
     Indication: Vitamin supplementation
     Dosage: 0.400MG QD,  CCD 0,4 MG, COMPRIM?
     Route: 048
  8. Temesta [Concomitant]
     Indication: Anxiety
     Dosage: 0.500MG QD,  1 MG, COMPRIM? S?CABLE
     Route: 048
  9. GLYCOPYRRONIUM\INDACATEROL [Concomitant]
     Active Substance: GLYCOPYRRONIUM\INDACATEROL
     Indication: Anxiety
     Dosage: 1.000DF QD,  BREEZHALER 85 MICROGRAMMES/43 MICROGRAMMES, POUDRE POUR INHALATION EN G?LULE
     Route: 055

REACTIONS (1)
  - Acute kidney injury [Not Recovered/Not Resolved]

NARRATIVE: CASE EVENT DATE: 20230711
